FAERS Safety Report 25282101 (Version 5)
Quarter: 2025Q3

REPORT INFORMATION
  Report Type: Spontaneous
  Country: US (occurrence: US)
  Receive Date: 20250508
  Receipt Date: 20250806
  Transmission Date: 20251020
  Serious: Yes (Hospitalization, Other)
  Sender: BRISTOL-MYERS SQUIBB COMPANY
  Company Number: US-EXELIXIS-EXL-2025-007158

PATIENT
  Age: 66 Year
  Sex: Male

DRUGS (20)
  1. OPDIVO [Suspect]
     Active Substance: NIVOLUMAB
     Indication: Metastatic renal cell carcinoma
  2. OPDIVO [Suspect]
     Active Substance: NIVOLUMAB
     Indication: Metastases to lung
  3. OPDIVO [Suspect]
     Active Substance: NIVOLUMAB
     Indication: Metastases to liver
  4. OPDIVO [Suspect]
     Active Substance: NIVOLUMAB
     Indication: Metastases to adrenals
  5. OPDIVO [Suspect]
     Active Substance: NIVOLUMAB
     Indication: Metastases to lymph nodes
  6. CABOMETYX [Suspect]
     Active Substance: CABOZANTINIB S-MALATE
     Indication: Metastatic renal cell carcinoma
     Route: 048
     Dates: start: 20250416, end: 20250603
  7. CABOMETYX [Suspect]
     Active Substance: CABOZANTINIB S-MALATE
     Indication: Metastases to lung
  8. CABOMETYX [Suspect]
     Active Substance: CABOZANTINIB S-MALATE
     Indication: Metastases to liver
  9. CABOMETYX [Suspect]
     Active Substance: CABOZANTINIB S-MALATE
     Indication: Metastases to adrenals
  10. CABOMETYX [Suspect]
     Active Substance: CABOZANTINIB S-MALATE
     Indication: Metastases to lymph nodes
  11. BISACODYL [Concomitant]
     Active Substance: BISACODYL
     Indication: Product used for unknown indication
  12. METHOCARBAMOL [Concomitant]
     Active Substance: METHOCARBAMOL
     Indication: Product used for unknown indication
  13. MILK OF MAGNESIA [Concomitant]
     Active Substance: MAGNESIUM HYDROXIDE
     Indication: Product used for unknown indication
  14. ONDANSETRON [Concomitant]
     Active Substance: ONDANSETRON
     Indication: Product used for unknown indication
  15. AMLODIPINE BESYLATE [Concomitant]
     Active Substance: AMLODIPINE BESYLATE
     Indication: Hypertension
  16. DEXAMETHASONE SODIUM PHOSPHATE [Concomitant]
     Active Substance: DEXAMETHASONE SODIUM PHOSPHATE
     Indication: Product used for unknown indication
  17. BISACODYL [Concomitant]
     Active Substance: BISACODYL
     Indication: Product used for unknown indication
  18. OXYCODONE HYDROCHLORIDE [Concomitant]
     Active Substance: OXYCODONE HYDROCHLORIDE
     Indication: Product used for unknown indication
  19. POLYETHYLENE GLYCOLS [Concomitant]
     Active Substance: POLYETHYLENE GLYCOLS
     Indication: Product used for unknown indication
  20. PROCHLORPERAZINE [Concomitant]
     Active Substance: PROCHLORPERAZINE
     Indication: Product used for unknown indication

REACTIONS (43)
  - Thrombocytopenia [Unknown]
  - Atrial fibrillation [Unknown]
  - Electrocardiogram QT prolonged [Recovering/Resolving]
  - Ileus paralytic [Unknown]
  - Hypoxia [Unknown]
  - Urinary retention [Recovering/Resolving]
  - Pericardial effusion [Unknown]
  - Ascites [Unknown]
  - Encephalopathy [Recovering/Resolving]
  - Atrial flutter [Unknown]
  - Anuria [Unknown]
  - Pneumonia [Unknown]
  - Pain [Unknown]
  - Alanine aminotransferase increased [Unknown]
  - Aspartate aminotransferase increased [Unknown]
  - Blood alkaline phosphatase increased [Unknown]
  - Rash [Unknown]
  - Constipation [Unknown]
  - Nausea [Unknown]
  - Dysgeusia [Unknown]
  - Abdominal pain [Unknown]
  - Pleural effusion [Unknown]
  - Atelectasis [Unknown]
  - Exercise tolerance decreased [Unknown]
  - Dysuria [Unknown]
  - Petechiae [Unknown]
  - Urine odour abnormal [Unknown]
  - Illness [Unknown]
  - Full blood count abnormal [Unknown]
  - Metabolic function test abnormal [Unknown]
  - Fall [Unknown]
  - Hypophagia [Unknown]
  - Anxiety [Unknown]
  - Blood bilirubin increased [Unknown]
  - Generalised oedema [Unknown]
  - Weight abnormal [Unknown]
  - Appetite disorder [Unknown]
  - Pelvic pain [Unknown]
  - Cancer pain [Unknown]
  - Procedural pain [Unknown]
  - Anaemia [Unknown]
  - Dyspnoea [Unknown]
  - Depression [Unknown]

NARRATIVE: CASE EVENT DATE: 20250501
